FAERS Safety Report 6843834-6 (Version None)
Quarter: 2010Q2

REPORT INFORMATION
  Report Type: 
  Country: None (occurrence: None)
  Receive Date: 20100629
  Receipt Date: 20100402
  Transmission Date: 20101027
  Serious: No
  Sender: FDA-Public Use
  Company Number: US-WYE-H14511010

PATIENT
  Age: 57 Year
  Sex: Female
  Weight: 99.88 kg

DRUGS (13)
  1. PRISTIQ [Suspect]
     Indication: DEPRESSION
     Dosage: 50 MG,
     Dates: start: 20100402
  2. ABILIFY [Suspect]
     Dates: start: 20100402
  3. IMIPRAMINE [Concomitant]
  4. DEXTROAMPHETAMINE SULFATE (DEXAMFERAMINE SULFATE) [Concomitant]
  5. DIAZEPAM [Concomitant]
  6. BUSPAR [Concomitant]
  7. CYCLOBENZAPRINE [Concomitant]
  8. LEVOTHYROXINE SODIUM [Concomitant]
  9. LASIX [Concomitant]
  10. DARVON COMPOUND-65 (ACETYLSALICYCLIC ACID/ CAFFEINE/ DEXTROPROPOXYPHEN [Concomitant]
  11. ADVAIR DISKUS 100/50 [Concomitant]
  12. PROVENTIL [Concomitant]
  13. HYOSCYAMINE (HYOSCYAMINE) [Concomitant]

REACTIONS (1)
  - HYPERSOMNIA [None]
